FAERS Safety Report 24372411 (Version 1)
Quarter: 2024Q3

REPORT INFORMATION
  Report Type: Spontaneous
  Country: FR (occurrence: FR)
  Receive Date: 20240927
  Receipt Date: 20240927
  Transmission Date: 20241016
  Serious: Yes (Hospitalization)
  Sender: RANBAXY
  Company Number: FR-SUN PHARMACEUTICAL INDUSTRIES LTD-2024RR-470023

PATIENT
  Age: 65 Year
  Sex: Female
  Weight: 55 kg

DRUGS (4)
  1. CITALOPRAM [Suspect]
     Active Substance: CITALOPRAM
     Indication: Product used for unknown indication
     Dosage: 56 DOSAGE FORM, UNK
     Route: 048
     Dates: start: 20240620
  2. AMITRIPTYLINE HYDROCHLORIDE [Suspect]
     Active Substance: AMITRIPTYLINE HYDROCHLORIDE
     Indication: Product used for unknown indication
     Dosage: 29 DOSAGE FORM, UNK
     Route: 048
     Dates: start: 20240620
  3. HALDOL [Suspect]
     Active Substance: HALOPERIDOL
     Indication: Product used for unknown indication
     Dosage: UNK
     Route: 048
     Dates: start: 20240620
  4. XANAX [Suspect]
     Active Substance: ALPRAZOLAM
     Indication: Product used for unknown indication
     Dosage: 90 DOSAGE FORM, UNK
     Route: 048
     Dates: start: 20240620

REACTIONS (3)
  - Disturbance in attention [Recovered/Resolved]
  - Poisoning deliberate [Recovered/Resolved]
  - Coma [Recovered/Resolved]

NARRATIVE: CASE EVENT DATE: 20240620
